FAERS Safety Report 20838713 (Version 1)
Quarter: 2022Q2

REPORT INFORMATION
  Report Type: Spontaneous
  Country: NO (occurrence: NO)
  Receive Date: 20220517
  Receipt Date: 20220517
  Transmission Date: 20220720
  Serious: Yes (Disabling)
  Sender: FDA-Public Use
  Company Number: None

PATIENT

DRUGS (1)
  1. WELLBUTRIN [Suspect]
     Active Substance: BUPROPION HYDROCHLORIDE
     Indication: Depression
     Dosage: 150 MG, QD (GRADUALLY INCREASED THE DOSE TO 150 MG PER DAY.)
     Route: 048
     Dates: start: 20210301, end: 202106

REACTIONS (10)
  - Meibomian gland dysfunction [Not Recovered/Not Resolved]
  - Dry eye [Not Recovered/Not Resolved]
  - Lacrimation decreased [Not Recovered/Not Resolved]
  - Lacrimation decreased [Not Recovered/Not Resolved]
  - Weight decreased [Recovered/Resolved with Sequelae]
  - Visual impairment [Unknown]
  - Loss of personal independence in daily activities [Unknown]
  - Foreign body sensation in eyes [Unknown]
  - Eye irritation [Unknown]
  - Headache [Unknown]

NARRATIVE: CASE EVENT DATE: 20210401
